FAERS Safety Report 22042252 (Version 1)
Quarter: 2023Q1

REPORT INFORMATION
  Report Type: Spontaneous
  Country: US (occurrence: US)
  Receive Date: 20230227
  Receipt Date: 20230227
  Transmission Date: 20230418
  Serious: No
  Sender: FDA-Public Use
  Company Number: US-AstraZeneca-2023A033892

PATIENT
  Sex: Male

DRUGS (1)
  1. TRASTUZUMAB DERUXTECAN [Suspect]
     Active Substance: TRASTUZUMAB DERUXTECAN
     Indication: HER2 protein overexpression
     Dosage: UNK
     Route: 042

REACTIONS (2)
  - Product use issue [Recovered/Resolved]
  - No adverse event [Unknown]
